FAERS Safety Report 4493877-5 (Version None)
Quarter: 2004Q4

REPORT INFORMATION
  Report Type: 
  Country: None (occurrence: None)
  Receive Date: 20041102
  Receipt Date: 20041018
  Transmission Date: 20050328
  Serious: Yes (Disabling)
  Sender: FDA-Public Use
  Company Number: 2004GB02485

PATIENT
  Age: 78 Year
  Sex: Female
  Weight: 92.1 kg

DRUGS (2)
  1. QUETIAPINE [Suspect]
     Indication: AGITATION
     Dosage: 100 MG DAILY PO
     Route: 048
     Dates: start: 20040817, end: 20041001
  2. QUETIAPINE [Suspect]
     Indication: AGITATION
     Dosage: DOSE REDUCED ON 01 OCT 2004
     Dates: start: 20041001

REACTIONS (2)
  - AGITATION [None]
  - CONFUSIONAL STATE [None]
